FAERS Safety Report 7450198-6 (Version None)
Quarter: 2011Q1

REPORT INFORMATION
  Report Type: 
  Country: None (occurrence: None)
  Receive Date: 20110302
  Receipt Date: 20101208
  Transmission Date: 20110831
  Serious: No
  Sender: FDA-Public Use
  Company Number: 023454

PATIENT
  Sex: Female

DRUGS (1)
  1. CIMZIA [Suspect]
     Indication: CROHN'S DISEASE
     Dosage: (SUBCUTANEOUS)
     Route: 058
     Dates: start: 20100623

REACTIONS (8)
  - ARTHRALGIA [None]
  - BACK PAIN [None]
  - INJECTION SITE PAIN [None]
  - FAECAL INCONTINENCE [None]
  - FATIGUE [None]
  - FEELING ABNORMAL [None]
  - DECREASED APPETITE [None]
  - HEADACHE [None]
